FAERS Safety Report 11177602 (Version 2)
Quarter: 2015Q3

REPORT INFORMATION
  Report Type: Spontaneous
  Country: FR (occurrence: FR)
  Receive Date: 20150610
  Receipt Date: 20150706
  Transmission Date: 20151125
  Serious: Yes (Death, Other)
  Sender: FDA-Public Use
  Company Number: FR-OTSUKA-2015_002990

PATIENT
  Age: 25 Year
  Sex: Male

DRUGS (2)
  1. ABILIFY [Suspect]
     Active Substance: ARIPIPRAZOLE
     Indication: SCHIZOPHRENIA, PARANOID TYPE
     Dosage: UNK
     Route: 048
  2. ABILIFY MAINTENA [Suspect]
     Active Substance: ARIPIPRAZOLE
     Indication: SCHIZOPHRENIA, PARANOID TYPE
     Dosage: UNK, ONCE PER MONTH
     Route: 030

REACTIONS (4)
  - Drug ineffective for unapproved indication [Unknown]
  - Drug effect decreased [Unknown]
  - Sleep disorder [Unknown]
  - Completed suicide [Fatal]

NARRATIVE: CASE EVENT DATE: 20150507
